FAERS Safety Report 8726301 (Version 2)
Quarter: 2012Q4

REPORT INFORMATION
  Report Type: 
  Country: US (occurrence: US)
  Receive Date: 20120816
  Receipt Date: 20121005
  Transmission Date: 20130627
  Serious: Yes (Hospitalization, Other)
  Sender: FDA-Public Use
  Company Number: PHEH2012US015840

PATIENT
  Sex: Female
  Weight: 55.33 kg

DRUGS (2)
  1. GLEEVEC [Suspect]
     Indication: CHRONIC MYELOID LEUKAEMIA
     Dosage: 400 mg, QD
     Route: 048
  2. GLEEVEC [Suspect]
     Dosage: 400 mg, daily except for Sundays
     Route: 048

REACTIONS (3)
  - Back pain [Unknown]
  - Osteoporosis [Unknown]
  - Fall [Unknown]
